FAERS Safety Report 5255827-3 (Version None)
Quarter: 2007Q1

REPORT INFORMATION
  Report Type: 
  Country: None (occurrence: None)
  Receive Date: 20070301
  Receipt Date: 20070220
  Transmission Date: 20070707
  Serious: Yes (Death)
  Sender: FDA-Public Use
  Company Number: 2006SP007862

PATIENT
  Age: 50 Year
  Sex: Female

DRUGS (1)
  1. INTRON A [Suspect]
     Indication: HEPATITIS C
     Dosage: 3 MIU; UNK; IM
     Route: 030

REACTIONS (3)
  - CARDIO-RESPIRATORY ARREST [None]
  - LOSS OF CONSCIOUSNESS [None]
  - SUBARACHNOID HAEMORRHAGE [None]
